FAERS Safety Report 17943389 (Version 1)
Quarter: 2020Q2

REPORT INFORMATION
  Report Type: Spontaneous
  Country: GB (occurrence: GB)
  Receive Date: 20200625
  Receipt Date: 20200625
  Transmission Date: 20200714
  Serious: Yes (Disabling)
  Sender: FDA-Public Use
  Company Number: GB-TORRENT-00023699

PATIENT
  Age: 61 Year
  Sex: Male
  Weight: 85 kg

DRUGS (3)
  1. RAMIPRIL. [Concomitant]
     Active Substance: RAMIPRIL
     Indication: PRODUCT USED FOR UNKNOWN INDICATION
     Dosage: UNKNOWN
  2. ROSUVASTATIN. [Suspect]
     Active Substance: ROSUVASTATIN
     Indication: DISEASE RISK FACTOR
     Dosage: TO LOWER CHOLESTEROL AND RISK OF HEART DISEASE.
     Dates: start: 20200511, end: 20200602
  3. LANSOPRAZOLE. [Concomitant]
     Active Substance: LANSOPRAZOLE
     Indication: PRODUCT USED FOR UNKNOWN INDICATION
     Dosage: UNKNOWN

REACTIONS (3)
  - Myalgia [Recovering/Resolving]
  - Pain in extremity [Unknown]
  - Arthralgia [Unknown]
